FAERS Safety Report 5026862-5 (Version None)
Quarter: 2006Q2

REPORT INFORMATION
  Report Type: 
  Country: None (occurrence: None)
  Receive Date: 20060609
  Receipt Date: 20060529
  Transmission Date: 20061013
  Serious: Yes (Hospitalization)
  Sender: FDA-Public Use
  Company Number: 2006-00726

PATIENT
  Age: 70 Year
  Sex: Male

DRUGS (5)
  1. VELCADE [Suspect]
     Indication: MANTLE CELL LYMPHOMA
     Dosage: SEE IMAGE
     Route: 042
  2. VALTREX [Concomitant]
  3. IMPORTAL (LACTITOL) [Concomitant]
  4. MORPHINE [Concomitant]
  5. DIFLUCAN [Concomitant]

REACTIONS (8)
  - CONSTIPATION [None]
  - DIARRHOEA [None]
  - DIZZINESS [None]
  - DRY MOUTH [None]
  - DYSPNOEA [None]
  - MUCOSAL INFLAMMATION [None]
  - PNEUMONIA [None]
  - THROMBOCYTOPENIA [None]
